FAERS Safety Report 16123992 (Version 1)
Quarter: 2019Q1

REPORT INFORMATION
  Report Type: Spontaneous
  Country: US (occurrence: US)
  Receive Date: 20190327
  Receipt Date: 20190327
  Transmission Date: 20190418
  Serious: Yes (Hospitalization)
  Sender: FDA-Public Use
  Company Number: US-BAYER-2019-058290

PATIENT
  Age: 61 Year
  Sex: Male
  Weight: 139.9 kg

DRUGS (3)
  1. ENOXAPARIN [Interacting]
     Active Substance: ENOXAPARIN
     Indication: ANTICOAGULANT THERAPY
     Dosage: 140 U, BID
  2. ENOXAPARIN [Interacting]
     Active Substance: ENOXAPARIN
     Indication: ATRIAL FIBRILLATION
  3. ACETYLSALICYLIC ACID (CARDIO) [Suspect]
     Active Substance: ASPIRIN

REACTIONS (5)
  - Abdominal wall haematoma [None]
  - Haemorrhagic anaemia [None]
  - Product administration error [None]
  - Hypovolaemic shock [None]
  - Labelled drug-drug interaction medication error [None]
